FAERS Safety Report 7441793-9 (Version None)
Quarter: 2011Q2

REPORT INFORMATION
  Report Type: 
  Country: None (occurrence: None)
  Receive Date: 20110428
  Receipt Date: 20110427
  Transmission Date: 20111010
  Serious: Yes (Hospitalization, Other)
  Sender: FDA-Public Use
  Company Number: US-PFIZER INC-2010072342

PATIENT
  Sex: Male

DRUGS (3)
  1. NIFEDIPINE [Concomitant]
     Dosage: 60 MG, UNK
     Dates: start: 20090211
  2. SIMVASTATIN [Concomitant]
     Dosage: 40 MG, UNK
     Dates: start: 20090211
  3. CHANTIX [Suspect]
     Indication: SMOKING CESSATION THERAPY
     Dosage: 1 MG, UNK
     Dates: start: 20080101, end: 20090801

REACTIONS (6)
  - INTENTIONAL OVERDOSE [None]
  - RENAL FAILURE [None]
  - DEPRESSION [None]
  - MOOD SWINGS [None]
  - FALL [None]
  - SUICIDE ATTEMPT [None]
